FAERS Safety Report 9021013 (Version 1)
Quarter: 2013Q1

REPORT INFORMATION
  Report Type: Spontaneous
  Country: US (occurrence: US)
  Receive Date: 20130119
  Receipt Date: 20130119
  Transmission Date: 20140127
  Serious: No
  Sender: FDA-Public Use
  Company Number: US-ALLERGAN-1203078US

PATIENT
  Age: 51 Year
  Sex: Female
  Weight: 54.42 kg

DRUGS (5)
  1. BOTOX COSMETIC [Suspect]
     Indication: SKIN WRINKLING
     Dosage: 8 UNITS, SINGLE
     Route: 030
     Dates: start: 20120217, end: 20120217
  2. BOTOX COSMETIC [Suspect]
     Dosage: UNK
     Dates: start: 20110328, end: 20110328
  3. BOTOX COSMETIC [Suspect]
     Dosage: UNK
     Dates: start: 20111202, end: 20111202
  4. VITAMIN D /00107901/ [Concomitant]
     Indication: PRODUCT USED FOR UNKNOWN INDICATION
  5. VITAMIN D /00107901/ [Concomitant]

REACTIONS (5)
  - Lip disorder [Not Recovered/Not Resolved]
  - Drooling [Not Recovered/Not Resolved]
  - Speech disorder [Not Recovered/Not Resolved]
  - Facial paresis [Not Recovered/Not Resolved]
  - Wrong technique in drug usage process [Unknown]
